FAERS Safety Report 19056194 (Version 1)
Quarter: 2021Q1

REPORT INFORMATION
  Report Type: Spontaneous
  Country: FR (occurrence: FR)
  Receive Date: 20210325
  Receipt Date: 20210325
  Transmission Date: 20210420
  Serious: Yes (Hospitalization)
  Sender: FDA-Public Use
  Company Number: FR-SUN PHARMACEUTICAL INDUSTRIES LTD-2021RR-287637

PATIENT
  Age: 35 Year
  Sex: Female
  Weight: 40 kg

DRUGS (2)
  1. LAROXYL 40 MG/ML, SOLUTION BUVABLE [Suspect]
     Active Substance: AMITRIPTYLINE HYDROCHLORIDE
     Indication: INTENTIONAL OVERDOSE
     Dosage: 40 MILLILITER, IN TOTAL
     Route: 048
     Dates: start: 20210125, end: 20210125
  2. TRAMADOL. [Suspect]
     Active Substance: TRAMADOL
     Indication: INTENTIONAL OVERDOSE
     Dosage: NP ()
     Route: 048
     Dates: start: 20210125, end: 20210125

REACTIONS (5)
  - Coma [Recovered/Resolved]
  - Mydriasis [Recovered/Resolved]
  - Hypoglycaemia [Recovered/Resolved]
  - Poisoning deliberate [Recovered/Resolved]
  - Bradypnoea [Recovered/Resolved]

NARRATIVE: CASE EVENT DATE: 20210125
